FAERS Safety Report 21293270 (Version 2)
Quarter: 2022Q4

REPORT INFORMATION
  Report Type: Spontaneous
  Country: US (occurrence: US)
  Receive Date: 20220905
  Receipt Date: 20221026
  Transmission Date: 20230112
  Serious: Yes (Other)
  Sender: FDA-Public Use
  Company Number: US-CELGENE-USA-20170709436

PATIENT
  Age: 39 Year
  Sex: Female

DRUGS (1)
  1. REVLIMID [Suspect]
     Active Substance: LENALIDOMIDE
     Indication: Product used for unknown indication
     Dosage: 15 MILLIGRAM
     Route: 050

REACTIONS (2)
  - Exposure via body fluid [Unknown]
  - Pregnancy on contraceptive [Unknown]
